FAERS Safety Report 8629736 (Version 2)
Quarter: 2013Q3

REPORT INFORMATION
  Report Type: Spontaneous
  Country: US (occurrence: US)
  Receive Date: 20120622
  Receipt Date: 20130708
  Transmission Date: 20140515
  Serious: No
  Sender: FDA-Public Use
  Company Number: US-ASTRAZENECA-2012SE36386

PATIENT
  Age: 17947 Day
  Sex: Female

DRUGS (7)
  1. NEXIUM [Suspect]
     Indication: GASTROOESOPHAGEAL REFLUX DISEASE
     Dosage: 1 A DAY
     Route: 048
     Dates: start: 2009, end: 2012
  2. NEXIUM [Suspect]
     Indication: GASTROOESOPHAGEAL REFLUX DISEASE
     Route: 048
     Dates: start: 20090901
  3. OMEPRAZOLE [Concomitant]
     Dates: start: 20090202
  4. ESTROGEN [Concomitant]
     Dates: start: 20090619
  5. AMITIZA [Concomitant]
     Dates: start: 20100116
  6. ENJUVIA [Concomitant]
     Dates: start: 20100625
  7. ACTONEL [Concomitant]
     Dates: start: 20101013

REACTIONS (9)
  - Osteoporosis [Unknown]
  - Multiple fractures [Unknown]
  - Arthritis [Unknown]
  - Cor pulmonale [Unknown]
  - Bone disorder [Unknown]
  - Rheumatoid arthritis [Unknown]
  - Androgen deficiency [Unknown]
  - Osteoarthritis [Unknown]
  - Depression [Unknown]
